FAERS Safety Report 10158889 (Version 1)
Quarter: 2014Q2

REPORT INFORMATION
  Report Type: Spontaneous
  Country: US (occurrence: US)
  Receive Date: 20140508
  Receipt Date: 20140508
  Transmission Date: 20141212
  Serious: No
  Sender: FDA-Public Use
  Company Number: US-BIOGENIDEC-2014BI039440

PATIENT
  Age: 49 Year
  Sex: Female

DRUGS (9)
  1. TECFIDERA [Suspect]
     Indication: MULTIPLE SCLEROSIS
     Route: 048
     Dates: start: 201309
  2. BYSTOLIC [Concomitant]
  3. CRESTOR [Concomitant]
  4. EXCEDRIN EXTRA STRENGTH [Concomitant]
  5. KLONOPIN [Concomitant]
  6. MAGNESIUM [Concomitant]
  7. PROZAC [Concomitant]
  8. VIT D [Concomitant]
  9. VIT B [Concomitant]

REACTIONS (2)
  - Fall [Recovered/Resolved]
  - Multiple sclerosis relapse [Unknown]
